FAERS Safety Report 5534083-2 (Version None)
Quarter: 2007Q4

REPORT INFORMATION
  Report Type: 
  Country: None (occurrence: None)
  Receive Date: 20071129
  Receipt Date: 20071129
  Transmission Date: 20080405
  Serious: Yes (Other)
  Sender: FDA-Public Use
  Company Number: None

PATIENT
  Age: 51 Year
  Sex: Female
  Weight: 56.6996 kg

DRUGS (1)
  1. FOSAMAX [Suspect]
     Indication: OSTEOPENIA
     Dosage: 70 MG TABLET 1 A WEEK PO
     Route: 048
     Dates: start: 20070401, end: 20070525

REACTIONS (2)
  - ARTHROPATHY [None]
  - MOVEMENT DISORDER [None]
